FAERS Safety Report 18321048 (Version 54)
Quarter: 2025Q3

REPORT INFORMATION
  Report Type: Report from Study
  Country: US (occurrence: US)
  Receive Date: 20200928
  Receipt Date: 20250922
  Transmission Date: 20251021
  Serious: Yes (Hospitalization, Other)
  Sender: TAKEDA
  Company Number: US-SHIRE-US202031165

PATIENT
  Age: 46 Year
  Sex: Female
  Weight: 85 kg

DRUGS (45)
  1. HUMAN IMMUNOGLOBULIN G [Suspect]
     Active Substance: HUMAN IMMUNOGLOBULIN G
     Indication: Immunodeficiency common variable
     Dosage: 10 GRAM, 1/WEEK
  2. HUMAN IMMUNOGLOBULIN G [Suspect]
     Active Substance: HUMAN IMMUNOGLOBULIN G
     Indication: Primary immunodeficiency syndrome
     Dosage: 11 GRAM, 1/WEEK
  3. HUMAN IMMUNOGLOBULIN G [Suspect]
     Active Substance: HUMAN IMMUNOGLOBULIN G
     Indication: Hypogammaglobulinaemia
     Dosage: 12 GRAM, 1/WEEK
  4. HUMAN IMMUNOGLOBULIN G [Suspect]
     Active Substance: HUMAN IMMUNOGLOBULIN G
  5. HUMAN IMMUNOGLOBULIN G [Suspect]
     Active Substance: HUMAN IMMUNOGLOBULIN G
  6. HUMAN IMMUNOGLOBULIN G [Suspect]
     Active Substance: HUMAN IMMUNOGLOBULIN G
     Dosage: 12 GRAM, 1/WEEK
  7. GABAPENTIN [Suspect]
     Active Substance: GABAPENTIN
     Indication: Product used for unknown indication
  8. DEPAKOTE [Suspect]
     Active Substance: DIVALPROEX SODIUM
     Indication: Product used for unknown indication
  9. ACETAMINOPHEN [Concomitant]
     Active Substance: ACETAMINOPHEN
  10. CORTEF [Concomitant]
     Active Substance: HYDROCORTISONE
  11. CYMBALTA [Concomitant]
     Active Substance: DULOXETINE HYDROCHLORIDE
  12. LEVOTHYROXINE SODIUM [Concomitant]
     Active Substance: LEVOTHYROXINE SODIUM
  13. BACLOFEN [Concomitant]
     Active Substance: BACLOFEN
  14. MAGNESIUM OXIDE [Concomitant]
     Active Substance: MAGNESIUM OXIDE
  15. NORCO [Concomitant]
     Active Substance: ACETAMINOPHEN\HYDROCODONE BITARTRATE
  16. PREDNISONE [Concomitant]
     Active Substance: PREDNISONE
  17. ALBUTEROL SULFATE [Concomitant]
     Active Substance: ALBUTEROL SULFATE
  18. NAPROXEN SODIUM [Concomitant]
     Active Substance: NAPROXEN SODIUM
  19. LAMICTAL [Concomitant]
     Active Substance: LAMOTRIGINE
  20. METOPROLOL TARTRATE [Concomitant]
     Active Substance: METOPROLOL TARTRATE
  21. BUPRENORPHINE [Concomitant]
     Active Substance: BUPRENORPHINE
  22. VITAMIN D3 [Concomitant]
     Active Substance: CHOLECALCIFEROL
  23. CEFACLOR [Concomitant]
     Active Substance: CEFACLOR
  24. EPINEPHRINE [Concomitant]
     Active Substance: EPINEPHRINE
  25. NAPROXEN [Concomitant]
     Active Substance: NAPROXEN
  26. FLUTICASONE PROPIONATE [Concomitant]
     Active Substance: FLUTICASONE PROPIONATE
  27. LISINOPRIL [Concomitant]
     Active Substance: LISINOPRIL
  28. AZITHROMYCIN [Concomitant]
     Active Substance: AZITHROMYCIN
  29. PHENERGAN [Concomitant]
     Active Substance: PROMETHAZINE HYDROCHLORIDE
  30. MARINOL [Concomitant]
     Active Substance: DRONABINOL
  31. FOLIC ACID [Concomitant]
     Active Substance: FOLIC ACID
  32. ALBUTEROL [Concomitant]
     Active Substance: ALBUTEROL
  33. FLONASE [Concomitant]
     Active Substance: FLUTICASONE PROPIONATE
  34. MAGNESIUM [Concomitant]
     Active Substance: MAGNESIUM
  35. METOPROLOL [Concomitant]
     Active Substance: METOPROLOL
  36. PENTOLINIUM TARTRATE [Concomitant]
     Active Substance: PENTOLINIUM TARTRATE
  37. FLUTICASONE [Concomitant]
     Active Substance: FLUTICASONE
  38. CEFEPIME [Concomitant]
     Active Substance: CEFEPIME HYDROCHLORIDE
  39. LEVOTHYROXINE [Concomitant]
     Active Substance: LEVOTHYROXINE
  40. DIPHENHYDRAMINE [Concomitant]
     Active Substance: DIPHENHYDRAMINE
  41. REQUIP [Concomitant]
     Active Substance: ROPINIROLE HYDROCHLORIDE
  42. Sulfate de ferrous [Concomitant]
  43. OZEMPIC [Concomitant]
     Active Substance: SEMAGLUTIDE
  44. LEVAQUIN [Concomitant]
     Active Substance: LEVOFLOXACIN
  45. CLARITHROMYCIN [Concomitant]
     Active Substance: CLARITHROMYCIN

REACTIONS (49)
  - Lower respiratory tract infection [Unknown]
  - Gastrointestinal infection [Not Recovered/Not Resolved]
  - Gastric infection [Recovered/Resolved]
  - Respiratory tract infection [Recovered/Resolved]
  - Salmonellosis [Recovered/Resolved]
  - Escherichia infection [Recovered/Resolved]
  - Illness [Not Recovered/Not Resolved]
  - Arthritis [Unknown]
  - Cellulitis [Unknown]
  - Pneumonia [Unknown]
  - Pseudomonas infection [Unknown]
  - Muscle spasticity [Unknown]
  - Cystitis [Unknown]
  - Multiple sclerosis [Unknown]
  - Infection [Unknown]
  - Upper respiratory tract infection [Unknown]
  - Oral candidiasis [Unknown]
  - Sinusitis [Not Recovered/Not Resolved]
  - Muscle spasms [Unknown]
  - Chest pain [Unknown]
  - Pain in extremity [Unknown]
  - Malaise [Unknown]
  - Arthralgia [Unknown]
  - Headache [Unknown]
  - Fatigue [Unknown]
  - Hypersensitivity [Unknown]
  - Drug hypersensitivity [Unknown]
  - Urinary tract infection [Unknown]
  - Sinus disorder [Unknown]
  - Skin fissures [Unknown]
  - Lung disorder [Unknown]
  - Lymphadenitis [Unknown]
  - Gastrointestinal disorder [Unknown]
  - Mass [Unknown]
  - Injection site discharge [Unknown]
  - Oral infection [Unknown]
  - Localised infection [Not Recovered/Not Resolved]
  - Insurance issue [Unknown]
  - COVID-19 [Unknown]
  - Respiratory tract infection viral [Not Recovered/Not Resolved]
  - Product dose omission issue [Unknown]
  - Product use issue [Unknown]
  - Psoriasis [Unknown]
  - Tongue disorder [Unknown]
  - Liquid product physical issue [Unknown]
  - Dyskinesia [Unknown]
  - Infusion site bruising [Unknown]
  - Injection site pain [Unknown]
  - Pain [Unknown]

NARRATIVE: CASE EVENT DATE: 20220108
